FAERS Safety Report 7355677-8 (Version None)
Quarter: 2011Q1

REPORT INFORMATION
  Report Type: 
  Country: None (occurrence: None)
  Receive Date: 20110316
  Receipt Date: 20110308
  Transmission Date: 20110831
  Serious: Yes (Other)
  Sender: FDA-Public Use
  Company Number: US-AMGEN-USASP2011013198

PATIENT
  Sex: Male

DRUGS (3)
  1. NEUPOGEN [Suspect]
     Indication: RENAL TRANSPLANT
     Dates: start: 20110308
  2. VALCYTE [Concomitant]
  3. EPOGEN [Suspect]
     Indication: PRODUCT USED FOR UNKNOWN INDICATION

REACTIONS (3)
  - VISION BLURRED [None]
  - RENAL DISORDER [None]
  - INJECTION SITE PAIN [None]
